FAERS Safety Report 22280700 (Version 1)
Quarter: 2023Q2

REPORT INFORMATION
  Report Type: Spontaneous
  Country: US (occurrence: None)
  Receive Date: 20230503
  Receipt Date: 20230503
  Transmission Date: 20230722
  Serious: Yes (Other)
  Sender: FDA-Public Use
  Company Number: None

PATIENT
  Age: 49 Year
  Sex: Female
  Weight: 89.1 kg

DRUGS (3)
  1. PAXLOVID [Suspect]
     Active Substance: NIRMATRELVIR\RITONAVIR
     Indication: COVID-19
     Dosage: OTHER QUANTITY : 3 TABLET(S);?FREQUENCY : TWICE A DAY;?
     Route: 048
     Dates: start: 20230430, end: 20230502
  2. UNITHROID [Concomitant]
     Active Substance: LEVOTHYROXINE SODIUM
  3. VITAMINS [Concomitant]
     Active Substance: VITAMINS

REACTIONS (1)
  - Gastrooesophageal reflux disease [None]

NARRATIVE: CASE EVENT DATE: 20230430
